FAERS Safety Report 18962765 (Version 1)
Quarter: 2021Q1

REPORT INFORMATION
  Report Type: Spontaneous
  Country: US (occurrence: US)
  Receive Date: 20210302
  Receipt Date: 20210302
  Transmission Date: 20210420
  Serious: Yes (Hospitalization)
  Sender: FDA-Public Use
  Company Number: None

PATIENT
  Age: 78 Year
  Sex: Male
  Weight: 39 kg

DRUGS (1)
  1. VORICONAZOLE (VORICONAZOLE 200MG TAB) [Suspect]
     Active Substance: VORICONAZOLE
     Indication: INFECTION
     Dosage: OTHER DOSE:1 TAB;?
     Route: 048
     Dates: start: 20200513, end: 20200522

REACTIONS (1)
  - Hallucination [None]

NARRATIVE: CASE EVENT DATE: 20200522
